FAERS Safety Report 18417925 (Version 27)
Quarter: 2022Q2

REPORT INFORMATION
  Report Type: Spontaneous
  Country: CA (occurrence: CA)
  Receive Date: 20201023
  Receipt Date: 20220527
  Transmission Date: 20220721
  Serious: Yes (Hospitalization, Other)
  Sender: FDA-Public Use
  Company Number: CA-CELLTRION INC.-2020CA028960

PATIENT

DRUGS (14)
  1. INFLECTRA [Suspect]
     Active Substance: INFLIXIMAB-DYYB
     Indication: Crohn^s disease
     Dosage: 5 MG/KG, 0, 2, 6 THEN EVERY 8 WEEKS
     Route: 042
     Dates: start: 20201005, end: 20201005
  2. INFLECTRA [Suspect]
     Active Substance: INFLIXIMAB-DYYB
     Dosage: 5 MG/KG,  0, 2, 6 THEN EVERY 8 WEEKS
     Route: 042
     Dates: start: 20201019
  3. INFLECTRA [Suspect]
     Active Substance: INFLIXIMAB-DYYB
     Dosage: 5 MG/KG,  0, 2, 6 THEN EVERY 8 WEEKS
     Route: 042
     Dates: start: 20201116, end: 20201116
  4. INFLECTRA [Suspect]
     Active Substance: INFLIXIMAB-DYYB
     Dosage: 5 MG/KG,  0, 2, 6 THEN EVERY 8 WEEKS
     Route: 042
     Dates: start: 20210111, end: 20210111
  5. INFLECTRA [Suspect]
     Active Substance: INFLIXIMAB-DYYB
     Dosage: 5 MG/KG,  0, 2, 6 THEN EVERY 8 WEEKS
     Route: 042
     Dates: start: 20210308
  6. INFLECTRA [Suspect]
     Active Substance: INFLIXIMAB-DYYB
     Dosage: 375 MG
     Route: 042
     Dates: start: 20210428, end: 20210428
  7. INFLECTRA [Suspect]
     Active Substance: INFLIXIMAB-DYYB
     Dosage: 5 MG/KG,  0, 2, 6 THEN EVERY 8 WEEKS
     Route: 042
     Dates: start: 20210428
  8. INFLECTRA [Suspect]
     Active Substance: INFLIXIMAB-DYYB
     Dosage: 5 MG/KG,  0, 2, 6 THEN EVERY 8 WEEKS
     Route: 042
     Dates: start: 20210716
  9. INFLECTRA [Suspect]
     Active Substance: INFLIXIMAB-DYYB
     Dosage: 5 MG/KG,  0, 2, 6 THEN EVERY 8 WEEKS
     Route: 042
     Dates: start: 20211008
  10. INFLECTRA [Suspect]
     Active Substance: INFLIXIMAB-DYYB
     Dosage: 5 MG/KG,  0, 2, 6 THEN EVERY 8 WEEKS
     Route: 042
     Dates: start: 20211015
  11. INFLECTRA [Suspect]
     Active Substance: INFLIXIMAB-DYYB
     Dosage: 5 MG/KG,  0, 2, 6 THEN EVERY 8 WEEKS
     Route: 042
     Dates: start: 20220119
  12. INFLECTRA [Suspect]
     Active Substance: INFLIXIMAB-DYYB
     Dosage: 5 MG/KG,  0, 2, 6 THEN EVERY 8 WEEKS
     Route: 042
     Dates: start: 20220311
  13. INFLECTRA [Suspect]
     Active Substance: INFLIXIMAB-DYYB
     Dosage: 5 MG/KG, 0, 2, 6 THEN EVERY 8 WEEKS
     Route: 042
     Dates: start: 20220516
  14. PERINDOPRIL ERBUMINE [Concomitant]
     Active Substance: PERINDOPRIL ERBUMINE
     Dosage: 1 DF, DAILY 8 MG/2.5 MG 1/2 TAB
     Route: 048

REACTIONS (30)
  - Cerebrovascular accident [Unknown]
  - Cardiac failure [Unknown]
  - Nephrolithiasis [Not Recovered/Not Resolved]
  - Intestinal resection [Unknown]
  - Off label use [Unknown]
  - Intentional product use issue [Unknown]
  - Inappropriate schedule of product administration [Unknown]
  - Product dose omission issue [Unknown]
  - Condition aggravated [Recovering/Resolving]
  - Blood urine present [Unknown]
  - Pain [Unknown]
  - Back pain [Unknown]
  - Heart rate decreased [Unknown]
  - Asthenia [Not Recovered/Not Resolved]
  - Fatigue [Not Recovered/Not Resolved]
  - Nausea [Not Recovered/Not Resolved]
  - Vomiting [Unknown]
  - Weight decreased [Unknown]
  - Weight increased [Unknown]
  - Tooth infection [Unknown]
  - Toothache [Unknown]
  - Arthralgia [Unknown]
  - Infusion site haemorrhage [Recovered/Resolved]
  - Poor venous access [Not Recovered/Not Resolved]
  - Contusion [Not Recovered/Not Resolved]
  - Malaise [Recovered/Resolved]
  - Oropharyngeal pain [Unknown]
  - Throat irritation [Not Recovered/Not Resolved]
  - Cough [Not Recovered/Not Resolved]
  - Nasopharyngitis [Unknown]

NARRATIVE: CASE EVENT DATE: 20201001
